FAERS Safety Report 4660934-X (Version None)
Quarter: 2005Q2

REPORT INFORMATION
  Report Type: 
  Country: None (occurrence: None)
  Receive Date: 20050511
  Receipt Date: 20050429
  Transmission Date: 20051028
  Serious: No
  Sender: FDA-Public Use
  Company Number: 05P-163-0298947-00

PATIENT
  Age: 48 Year
  Sex: Male

DRUGS (12)
  1. KALETRA [Suspect]
  2. TRUVADA [Suspect]
     Dates: start: 20050127, end: 20050303
  3. TRAZODONE [Concomitant]
  4. LEXAPRO [Concomitant]
  5. FLUCONAZOLE [Concomitant]
  6. ACYCLOVIR [Concomitant]
  7. ZITHROMAX [Concomitant]
  8. DAPSONE [Concomitant]
  9. HYDROCHLOROTHIAZIDE [Concomitant]
  10. LISINOPRIL [Concomitant]
  11. ATENOLOL [Concomitant]
  12. SIMVASTATIN [Concomitant]

REACTIONS (9)
  - BODY TEMPERATURE INCREASED [None]
  - DECREASED APPETITE [None]
  - DEHYDRATION [None]
  - DRUG INEFFECTIVE [None]
  - GLYCOSURIA [None]
  - HYPOVOLAEMIA [None]
  - MYOCARDIAL INFARCTION [None]
  - PROTEINURIA [None]
  - RENAL FAILURE [None]
